FAERS Safety Report 5567192-2 (Version None)
Quarter: 2007Q4

REPORT INFORMATION
  Report Type: 
  Country: None (occurrence: None)
  Receive Date: 20071219
  Receipt Date: 20071025
  Transmission Date: 20080405
  Serious: Yes (Death)
  Sender: FDA-Public Use
  Company Number: US-PURDUE-USA_2007_0030215

PATIENT
  Age: 29 Year
  Sex: Male

DRUGS (1)
  1. OXYCONTIN [Suspect]
     Indication: PAIN
     Dates: start: 19981201, end: 19990923

REACTIONS (1)
  - DEATH [None]
